FAERS Safety Report 24335812 (Version 1)
Quarter: 2024Q3

REPORT INFORMATION
  Report Type: Spontaneous
  Country: US (occurrence: US)
  Receive Date: 20240919
  Receipt Date: 20240919
  Transmission Date: 20241017
  Serious: No
  Sender: MERCK
  Company Number: US-009507513-2409USA000464

PATIENT
  Sex: Female

DRUGS (9)
  1. WINREVAIR [Suspect]
     Active Substance: SOTATERCEPT-CSRK
     Indication: Product used for unknown indication
     Dosage: 0.4 ML UNDER THE SKIN FOR ONE DOSE, THEN INCREASE TO 1 ML FOR TARGET DOSE AFTER 3 WEEKS
     Route: 058
  2. REMODULIN [Suspect]
     Active Substance: TREPROSTINIL
     Indication: Pulmonary arterial hypertension
     Dosage: UNK
     Route: 058
     Dates: start: 202310
  3. REMODULIN [Suspect]
     Active Substance: TREPROSTINIL
     Dosage: 0.037 MICROGRAM PER KILOGRAM
     Route: 058
  4. REMODULIN [Suspect]
     Active Substance: TREPROSTINIL
     Dosage: AT A PUMP RATE 35 UL/H
     Route: 058
     Dates: start: 20240419
  5. REMODULIN [Suspect]
     Active Substance: TREPROSTINIL
     Dosage: AT A PUMP RATE 35 UL/HR
     Route: 058
  6. REMODULIN [Suspect]
     Active Substance: TREPROSTINIL
     Dosage: 0.037 MICROGRAM PER KILOGRAM
     Route: 058
  7. TADALAFIL [Concomitant]
     Active Substance: TADALAFIL
  8. OPSUMIT [Concomitant]
     Active Substance: MACITENTAN
  9. TRIAMCINOLONE ACETONIDE [Concomitant]
     Active Substance: TRIAMCINOLONE ACETONIDE

REACTIONS (3)
  - Headache [Recovering/Resolving]
  - Diarrhoea [Not Recovered/Not Resolved]
  - Oedema peripheral [Not Recovered/Not Resolved]

NARRATIVE: CASE EVENT DATE: 20240101
